FAERS Safety Report 9135994 (Version 1)
Quarter: 2013Q1

REPORT INFORMATION
  Report Type: Spontaneous
  Country: FR (occurrence: FR)
  Receive Date: 20130304
  Receipt Date: 20130304
  Transmission Date: 20140127
  Serious: Yes (Other)
  Sender: FDA-Public Use
  Company Number: FR-PFIZER INC-2013070286

PATIENT
  Sex: Female

DRUGS (1)
  1. SOMAVERT [Suspect]
     Dosage: UNK

REACTIONS (3)
  - Deafness [Not Recovered/Not Resolved]
  - Ear infection viral [Not Recovered/Not Resolved]
  - Anxiety [Not Recovered/Not Resolved]
